FAERS Safety Report 14511581 (Version 4)
Quarter: 2018Q3

REPORT INFORMATION
  Report Type: Spontaneous
  Country: IT (occurrence: IT)
  Receive Date: 20180209
  Receipt Date: 20180822
  Transmission Date: 20181010
  Serious: Yes (Hospitalization, Other)
  Sender: FDA-Public Use
  Company Number: IT-SA-2018SA026855

PATIENT
  Age: 65 Year
  Sex: Female

DRUGS (10)
  1. PAROXETINE HYDROCHLORIDE. [Interacting]
     Active Substance: PAROXETINE HYDROCHLORIDE
     Indication: DEPRESSION
     Dosage: 10 MG,QD
     Route: 065
  2. DEXAMETHASONE. [Concomitant]
     Active Substance: DEXAMETHASONE
     Dosage: UNK
  3. CLARITHROMYCIN. [Concomitant]
     Active Substance: CLARITHROMYCIN
     Indication: PNEUMONIA
     Dosage: 500 MG, BID
  4. DEXAMETHASONE. [Concomitant]
     Active Substance: DEXAMETHASONE
     Dosage: 20 MG, BID
  5. MANNITOL. [Concomitant]
     Active Substance: MANNITOL
     Dosage: 100 ML, Q6H
  6. AMIKACIN. [Concomitant]
     Active Substance: AMIKACIN
     Indication: PNEUMONIA
     Dosage: 1000 MG, QD
  7. CEFTRIAXONE. [Concomitant]
     Active Substance: CEFTRIAXONE
     Indication: PNEUMONIA
     Dosage: 2 G, QD
  8. CEFAZOLIN [Concomitant]
     Active Substance: CEFAZOLIN
     Dosage: UNK
  9. ENOXAPARIN SODIUM. [Suspect]
     Active Substance: ENOXAPARIN SODIUM
     Indication: PRODUCT USED FOR UNKNOWN INDICATION
     Dosage: 4000 IU,QD
     Route: 058
  10. LEVETIRACETAM. [Interacting]
     Active Substance: LEVETIRACETAM
     Indication: MENINGIOMA
     Dosage: 750 MG,BID

REACTIONS (10)
  - Liver abscess [Recovered/Resolved]
  - Epilepsy [Unknown]
  - Drug interaction [Unknown]
  - Meningioma [Recovered/Resolved]
  - Pancytopenia [Recovered/Resolved]
  - Cholelithiasis [Recovered/Resolved]
  - Jaundice [Recovered/Resolved]
  - Bone marrow failure [Recovered/Resolved]
  - Pneumonia [Recovered/Resolved]
  - Bile duct stone [Recovered/Resolved]
